FAERS Safety Report 7001284-6 (Version None)
Quarter: 2010Q3

REPORT INFORMATION
  Report Type: 
  Country: None (occurrence: None)
  Receive Date: 20100920
  Receipt Date: 20100309
  Transmission Date: 20110219
  Serious: No
  Sender: FDA-Public Use
  Company Number: US-ASTRAZENECA-2010SE10508

PATIENT
  Sex: Female

DRUGS (2)
  1. SEROQUEL [Suspect]
     Indication: MIDDLE INSOMNIA
     Route: 048
  2. SEROQUEL [Suspect]
     Route: 048

REACTIONS (3)
  - MEDICATION ERROR [None]
  - MIDDLE INSOMNIA [None]
  - THERAPY REGIMEN CHANGED [None]
